FAERS Safety Report 10648399 (Version 5)
Quarter: 2015Q4

REPORT INFORMATION
  Report Type: Spontaneous
  Country: US (occurrence: US)
  Receive Date: 20141212
  Receipt Date: 20151030
  Transmission Date: 20160304
  Serious: Yes (Hospitalization)
  Sender: FDA-Public Use
  Company Number: US-JNJFOC-20141206675

PATIENT
  Age: 66 Year
  Sex: Male

DRUGS (18)
  1. IMBRUVICA [Suspect]
     Active Substance: IBRUTINIB
     Indication: DIFFUSE LARGE B-CELL LYMPHOMA
     Route: 048
     Dates: start: 20141119
  2. BENZONATATE. [Concomitant]
     Active Substance: BENZONATATE
  3. VENTOLIN [Concomitant]
     Active Substance: ALBUTEROL SULFATE
  4. IMBRUVICA [Suspect]
     Active Substance: IBRUTINIB
     Indication: THERAPY NAIVE
     Route: 048
     Dates: start: 20141119
  5. DIAZEPAM. [Concomitant]
     Active Substance: DIAZEPAM
  6. SPIRIVA [Concomitant]
     Active Substance: TIOTROPIUM BROMIDE MONOHYDRATE
     Indication: CHRONIC OBSTRUCTIVE PULMONARY DISEASE
  7. TEMAZEPAM. [Concomitant]
     Active Substance: TEMAZEPAM
  8. ADVAIR HFA [Concomitant]
     Active Substance: FLUTICASONE PROPIONATE\SALMETEROL XINAFOATE
     Indication: CHRONIC OBSTRUCTIVE PULMONARY DISEASE
  9. RIZATRIPTAN BENZOATE. [Concomitant]
     Active Substance: RIZATRIPTAN BENZOATE
  10. DIVALPROEX [Concomitant]
     Active Substance: DIVALPROEX SODIUM
  11. TRIAMCINOLONE [Concomitant]
     Active Substance: TRIAMCINOLONE
  12. XANAX [Concomitant]
     Active Substance: ALPRAZOLAM
  13. NEURONTIN [Concomitant]
     Active Substance: GABAPENTIN
  14. PROTONIX [Concomitant]
     Active Substance: PANTOPRAZOLE SODIUM
  15. LASIX [Concomitant]
     Active Substance: FUROSEMIDE
  16. CEFTIN [Concomitant]
     Active Substance: CEFUROXIME AXETIL
  17. OXYCODONE [Concomitant]
     Active Substance: OXYCODONE
  18. PREDNISONE. [Concomitant]
     Active Substance: PREDNISONE

REACTIONS (7)
  - Chronic obstructive pulmonary disease [Recovering/Resolving]
  - Off label use [Unknown]
  - Product use issue [Unknown]
  - Pleural effusion [Unknown]
  - Decreased appetite [Unknown]
  - Pneumonia [Unknown]
  - Pain in extremity [Unknown]

NARRATIVE: CASE EVENT DATE: 2014
